FAERS Safety Report 7648327-4 (Version None)
Quarter: 2011Q3

REPORT INFORMATION
  Report Type: 
  Country: None (occurrence: None)
  Receive Date: 20110801
  Receipt Date: 20110722
  Transmission Date: 20111222
  Serious: Yes (Hospitalization, Other)
  Sender: FDA-Public Use
  Company Number: US-ASTRAZENECA-2011SE44299

PATIENT
  Age: 76 Year
  Sex: Female

DRUGS (3)
  1. NEXIUM [Interacting]
     Indication: GASTROOESOPHAGEAL REFLUX DISEASE
     Route: 048
     Dates: end: 20110614
  2. ZANTAC [Suspect]
     Indication: GASTROOESOPHAGEAL REFLUX DISEASE
     Dates: start: 20110601
  3. PLAVIX [Interacting]
     Indication: ANGIOPLASTY
     Route: 048
     Dates: start: 20110509

REACTIONS (12)
  - VASCULAR OCCLUSION [None]
  - NAUSEA [None]
  - DRUG INEFFECTIVE [None]
  - PIGMENTATION DISORDER [None]
  - EYE PAIN [None]
  - DIARRHOEA [None]
  - FATIGUE [None]
  - DRUG INTERACTION [None]
  - ANGIOPLASTY [None]
  - GASTROOESOPHAGEAL REFLUX DISEASE [None]
  - DEHYDRATION [None]
  - VOMITING [None]
